FAERS Safety Report 6173059-1 (Version None)
Quarter: 2009Q2

REPORT INFORMATION
  Report Type: 
  Country: None (occurrence: None)
  Receive Date: 20090428
  Receipt Date: 20090219
  Transmission Date: 20091009
  Serious: Yes (Life-Threatening, Other)
  Sender: FDA-Public Use
  Company Number: ADE2009-0579

PATIENT
  Sex: Male
  Weight: 3.15 kg

DRUGS (3)
  1. DIDANOSINE [Suspect]
     Dosage: 200MG DAILY TRANSPLACEN
     Route: 064
  2. ATAZANAVIR SULFATE [Suspect]
     Dosage: 800MG TRANSPLACEN
     Route: 064
  3. TENOFOVIR [Suspect]
     Dosage: 245MG TRANSPLACENTALLY
     Route: 064

REACTIONS (3)
  - CAESAREAN SECTION [None]
  - FOETAL DISTRESS SYNDROME [None]
  - MATERNAL DRUGS AFFECTING FOETUS [None]
